FAERS Safety Report 15839958 (Version 1)
Quarter: 2019Q1

REPORT INFORMATION
  Report Type: Spontaneous
  Country: ES (occurrence: ES)
  Receive Date: 20190117
  Receipt Date: 20190117
  Transmission Date: 20190417
  Serious: Yes (Death, Hospitalization, Other)
  Sender: FDA-Public Use
  Company Number: ES-MYLANLABS-2019M1003954

PATIENT
  Age: 38 Year
  Sex: Male

DRUGS (2)
  1. CALCIUM [Concomitant]
     Active Substance: CALCIUM
  2. CALCITONIN SALMON. [Suspect]
     Active Substance: CALCITONIN SALMON
     Indication: PRODUCT USED FOR UNKNOWN INDICATION
     Dosage: UNK
     Route: 058

REACTIONS (10)
  - Acute respiratory failure [Unknown]
  - Pulmonary haemorrhage [Fatal]
  - Plasma cell myeloma [Unknown]
  - Neurological decompensation [Unknown]
  - Multiple organ dysfunction syndrome [Fatal]
  - Subdural haematoma [Unknown]
  - Lung infiltration [Unknown]
  - Respiratory distress [Fatal]
  - Brain herniation [Unknown]
  - Calcification metastatic [Fatal]
